FAERS Safety Report 10987017 (Version 1)
Quarter: 2015Q2

REPORT INFORMATION
  Report Type: Spontaneous
  Country: US (occurrence: None)
  Receive Date: 20150402
  Receipt Date: 20150402
  Transmission Date: 20150821
  Serious: Yes (Hospitalization)
  Sender: FDA-Public Use
  Company Number: 2800423

PATIENT
  Age: 58 Year
  Sex: Female

DRUGS (2)
  1. SODIUM CHLORIDE 0.9% INJECTION, USP (SODIUM CHLORIDE) [Suspect]
     Active Substance: SODIUM CHLORIDE
     Indication: MEDICATION DILUTION
     Route: 041
     Dates: start: 20150318
  2. VANCOMYCIN HYDROCHLORIDE FOR INJECTION, USP, 1 GRAM, FLIPTOP VIAL (VANCOMYCIN HYDROCHLORIDE) [Suspect]
     Active Substance: VANCOMYCIN HYDROCHLORIDE
     Indication: URINARY TRACT INFECTION
     Route: 041
     Dates: start: 20150318

REACTIONS (4)
  - Liquid product physical issue [None]
  - Product quality issue [None]
  - Wrong technique in drug usage process [None]
  - Pneumonia [None]

NARRATIVE: CASE EVENT DATE: 20150318
